FAERS Safety Report 6550092-9 (Version None)
Quarter: 2010Q1

REPORT INFORMATION
  Report Type: 
  Country: None (occurrence: None)
  Receive Date: 20100119
  Receipt Date: 20100104
  Transmission Date: 20100710
  Serious: Yes (Other)
  Sender: FDA-Public Use
  Company Number: 2010-0167

PATIENT
  Age: 47 Year
  Sex: Female

DRUGS (3)
  1. APO GO AMPOULES (APO-GO) (APOMORPHINE HYDROCHLORIDE) (APOMORPHINE HYDR [Suspect]
     Indication: PARKINSON'S DISEASE
     Dosage: 3-4 MGS (1 IN 1 HR),SUBCUTANEOUS
     Route: 058
     Dates: start: 20060530, end: 20090610
  2. MADOPAR(MADOPAR  /00349201/) [Concomitant]
  3. MOTILIUM [Concomitant]

REACTIONS (2)
  - ERYTHEMA [None]
  - PAIN [None]
